FAERS Safety Report 12338257 (Version 1)
Quarter: 2016Q2

REPORT INFORMATION
  Report Type: Spontaneous
  Country: IT (occurrence: IT)
  Receive Date: 20160505
  Receipt Date: 20160505
  Transmission Date: 20160815
  Serious: Yes (Other)
  Sender: FDA-Public Use
  Company Number: IT-BAYER-2016-083706

PATIENT
  Sex: Male

DRUGS (6)
  1. ACETYLSALICYLIC ACID({=100 MG) [Suspect]
     Active Substance: ASPIRIN
     Route: 064
  2. DIGOXIN. [Concomitant]
     Active Substance: DIGOXIN
     Route: 064
  3. HEPARIN [Concomitant]
     Active Substance: HEPARIN SODIUM
     Route: 064
  4. HEPARIN [Concomitant]
     Active Substance: HEPARIN SODIUM
     Route: 064
  5. DIGOXIN. [Concomitant]
     Active Substance: DIGOXIN
     Route: 064
  6. ACETYLSALICYLIC ACID({=100 MG) [Suspect]
     Active Substance: ASPIRIN
     Route: 064

REACTIONS (3)
  - Low birth weight baby [None]
  - Small for dates baby [None]
  - Foetal exposure during pregnancy [None]
